FAERS Safety Report 4375197-2 (Version None)
Quarter: 2004Q2

REPORT INFORMATION
  Report Type: 
  Country: None (occurrence: None)
  Receive Date: 20040607
  Receipt Date: 20030728
  Transmission Date: 20050107
  Serious: Yes (Other)
  Sender: FDA-Public Use
  Company Number: 343654

PATIENT
  Age: 17 Year
  Sex: Male
  Weight: 86 kg

DRUGS (1)
  1. ACCUTANE [Suspect]
     Dosage: 40 MG 2 PER DAY ORAL
     Route: 048

REACTIONS (3)
  - ADVERSE EVENT [None]
  - HAEMOGLOBIN DECREASED [None]
  - WHITE BLOOD CELL COUNT DECREASED [None]
